FAERS Safety Report 11328607 (Version 2)
Quarter: 2015Q3

REPORT INFORMATION
  Report Type: Spontaneous
  Country: BR (occurrence: BR)
  Receive Date: 20150731
  Receipt Date: 20150902
  Transmission Date: 20151125
  Serious: Yes (Death, Hospitalization)
  Sender: FDA-Public Use
  Company Number: BR-SA-2015SA107157

PATIENT
  Age: 57 Year
  Sex: Male
  Weight: 72 kg

DRUGS (9)
  1. BACTRIM [Concomitant]
     Active Substance: SULFAMETHOXAZOLE\TRIMETHOPRIM
     Indication: INFECTION
     Dosage: 2 CAPSULES AFTER LUNCH, 3 TIMES PER WEEK?(WITH WATER
     Dates: start: 2011
  2. FOLIC ACID. [Concomitant]
     Active Substance: FOLIC ACID
     Dosage: 1 TABLET IN FASTING?(WITH WATER
     Dates: start: 201504
  3. ACYCLOVIR. [Concomitant]
     Active Substance: ACYCLOVIR
     Dosage: 2 CAPSULES EACH 12 HOURS?(WITH WATER
     Dates: start: 2014
  4. TRAMADOL. [Concomitant]
     Active Substance: TRAMADOL
     Indication: PAIN
     Dosage: 2 CAPSULES 3 TIMES PER WEEK, BEFORE HEMODIALYSIS (WITH WATER)
     Route: 048
     Dates: start: 201506
  5. VITAMIN B COMPLEX [Concomitant]
     Active Substance: CYANOCOBALAMIN\DEXPANTHENOL\NIACINAMIDE\PYRIDOXINE HYDROCHLORIDE\RIBOFLAVIN 5^-PHOSPHATE SODIUM\THIAMINE HYDROCHLORIDE\VITAMIN B COMPLEX
     Dosage: 1 CAPSULE AFTER LUNCH?(WITH WATER
     Dates: start: 201504
  6. RENAGEL [Suspect]
     Active Substance: SEVELAMER HYDROCHLORIDE
     Indication: HYPERPHOSPHATAEMIA
     Route: 065
     Dates: start: 20150714
  7. TYLEX [Concomitant]
     Active Substance: ACETAMINOPHEN\CODEINE PHOSPHATE
     Indication: PAIN
     Dates: start: 201506
  8. OMEPRAZOLE. [Concomitant]
     Active Substance: OMEPRAZOLE
     Indication: GASTRIC DISORDER
     Dosage: 1 CAPSULE IN THE MORNING AND 1 CAPSULE AT NIGHT?(WITH WATER
     Dates: start: 2011
  9. PURAN [Concomitant]
     Active Substance: LEVOTHYROXINE SODIUM
     Indication: THYROID DISORDER
     Dosage: 1 CAPSULE IN THE MORNING?(WITH WATER
     Dates: start: 2011

REACTIONS (7)
  - Gait disturbance [Fatal]
  - Dysstasia [Fatal]
  - Mobility decreased [Fatal]
  - Dyspnoea [Fatal]
  - Feeling abnormal [Fatal]
  - Drug ineffective [Unknown]
  - Vomiting [Fatal]

NARRATIVE: CASE EVENT DATE: 201507
